FAERS Safety Report 20262596 (Version 1)
Quarter: 2021Q4

REPORT INFORMATION
  Report Type: Spontaneous
  Country: DE (occurrence: DE)
  Receive Date: 20211231
  Receipt Date: 20211231
  Transmission Date: 20220303
  Serious: Yes (Hospitalization, Other)
  Sender: FDA-Public Use
  Company Number: None

PATIENT
  Sex: Male

DRUGS (2)
  1. ERLOTINIB [Suspect]
     Active Substance: ERLOTINIB
     Indication: Pancreatic carcinoma
     Route: 048
     Dates: start: 202108
  2. FLUOROURACIL\IRINOTECAN\LEUCOVORIN [Suspect]
     Active Substance: FLUOROURACIL\IRINOTECAN\LEUCOVORIN
     Indication: Pancreatic carcinoma
     Route: 065

REACTIONS (10)
  - Hypokinesia [Unknown]
  - Brain neoplasm [Unknown]
  - Headache [Unknown]
  - Vomiting [Unknown]
  - Muscle atrophy [Unknown]
  - Infection [Unknown]
  - Diarrhoea [Unknown]
  - Tumour haemorrhage [Unknown]
  - Weight decreased [Unknown]
  - Off label use [Unknown]

NARRATIVE: CASE EVENT DATE: 20211001
